FAERS Safety Report 9285839 (Version 1)
Quarter: 2013Q2

REPORT INFORMATION
  Report Type: Spontaneous
  Country: US (occurrence: US)
  Receive Date: 20130513
  Receipt Date: 20130513
  Transmission Date: 20140414
  Serious: Yes (Other)
  Sender: FDA-Public Use
  Company Number: US-SANOFI-AVENTIS-2013SA047463

PATIENT
  Age: 56 Year
  Sex: Female

DRUGS (19)
  1. AUBAGIO [Suspect]
     Indication: MULTIPLE SCLEROSIS
     Route: 048
     Dates: start: 20130409
  2. CYMBALTA [Concomitant]
  3. MAXALT /USA/ [Concomitant]
  4. PREDNISONE [Concomitant]
  5. PREDNISONE [Concomitant]
  6. ZOLEDRONIC ACID [Concomitant]
     Dosage: 5 MG/100 ML SOLUTION
  7. PROVENTIL [Concomitant]
     Dosage: 90MCG INHALER
  8. CLONAZEPAM [Concomitant]
  9. TOPIRAMATE [Concomitant]
  10. DESMOPRESSIN ACETATE [Concomitant]
  11. CLOBETASOL [Concomitant]
  12. METRONIDAZOLE [Concomitant]
  13. FLONASE [Concomitant]
     Dosage: NASAL SPRAY
  14. TRAZODONE [Concomitant]
  15. TIZANIDINE HYDROCHLORIDE [Concomitant]
  16. OXYCODONE HYDROCHLORIDE [Concomitant]
  17. OMEPRAZOLE [Concomitant]
  18. ADDERALL [Concomitant]
  19. AMMONIUM LACTATE [Concomitant]

REACTIONS (1)
  - Drug withdrawal syndrome [Unknown]
